FAERS Safety Report 6764675-4 (Version None)
Quarter: 2010Q2

REPORT INFORMATION
  Report Type: 
  Country: None (occurrence: None)
  Receive Date: 20100610
  Receipt Date: 20100531
  Transmission Date: 20101027
  Serious: Yes (Hospitalization)
  Sender: FDA-Public Use
  Company Number: JP-SHIRE-SPV1-2010-00602

PATIENT

DRUGS (18)
  1. LANTHANUM CARBONATE [Suspect]
     Indication: HYPERPHOSPHATAEMIA
     Route: 048
     Dates: start: 20090608, end: 20090621
  2. LANTHANUM CARBONATE [Suspect]
     Route: 048
     Dates: start: 20090622, end: 20091202
  3. CALCIUM CARBONATE [Concomitant]
     Indication: HYPERPHOSPHATAEMIA
     Dosage: 6 DF, UNK
  4. CALCIUM CARBONATE [Concomitant]
     Dosage: 3 DF, UNK
     Dates: start: 20090608
  5. FULSTAN [Concomitant]
     Dosage: .3 UG, UNK
     Route: 048
     Dates: start: 20090608, end: 20090706
  6. FULSTAN [Concomitant]
     Dosage: .15 UG, UNK
     Route: 048
     Dates: start: 20090707
  7. VITAMEDIN                          /00176001/ [Concomitant]
     Dosage: 2 DF, UNK
     Route: 048
  8. OLMETEC [Concomitant]
     Dosage: 40 MG, UNK
     Route: 048
  9. GASTROM [Concomitant]
     Dosage: 2 DF, UNK
     Route: 048
  10. LASIX [Concomitant]
     Dosage: 80 MG, UNK
     Route: 048
  11. ATELEC [Concomitant]
     Dosage: 20 MG, UNK
     Route: 048
  12. TAKEPRON [Concomitant]
     Dosage: 15 MG, UNK
     Route: 048
  13. LIPITOR [Concomitant]
     Dosage: 5 MG, UNK
     Route: 048
  14. CINAL                              /00257901/ [Concomitant]
     Dosage: 200 MG, UNK
     Route: 048
  15. COTRIM [Concomitant]
     Dosage: 1 DF, UNK
     Route: 048
  16. ADALAT CC [Concomitant]
     Dosage: 40 MG, UNK
     Route: 048
  17. FOLIAMIN [Concomitant]
     Dosage: 1 DF, UNK
     Route: 048
  18. ARTIST [Concomitant]
     Dosage: 5 MG, UNK
     Route: 048

REACTIONS (6)
  - HEPATIC FUNCTION ABNORMAL [None]
  - HYPERPARATHYROIDISM SECONDARY [None]
  - NAUSEA [None]
  - OEDEMA [None]
  - PERITONITIS [None]
  - VOMITING [None]
